FAERS Safety Report 4686513-6 (Version None)
Quarter: 2005Q2

REPORT INFORMATION
  Report Type: 
  Country: None (occurrence: None)
  Receive Date: 20050609
  Receipt Date: 20050411
  Transmission Date: 20051028
  Serious: Yes (Death)
  Sender: FDA-Public Use
  Company Number: PHNU2005DE01599

PATIENT
  Sex: Male

DRUGS (1)
  1. CARBAMAZEPINE [Suspect]
     Dosage: 150 MG, TID

REACTIONS (2)
  - CARDIAC OPERATION [None]
  - CEREBROVASCULAR DISORDER [None]
